FAERS Safety Report 5031649-3 (Version None)
Quarter: 2006Q2

REPORT INFORMATION
  Report Type: 
  Country: None (occurrence: None)
  Receive Date: 20060616
  Receipt Date: 20060605
  Transmission Date: 20061013
  Serious: Yes (Other)
  Sender: FDA-Public Use
  Company Number: 232576K06USA

PATIENT
  Age: 20 Year
  Sex: Female

DRUGS (1)
  1. REBIF [Suspect]
     Indication: MULTIPLE SCLEROSIS
     Dosage: 44 MCG, 3 IN 1 WEEKS, SUBCUTANEOUS
     Route: 058
     Dates: start: 20020409

REACTIONS (5)
  - CONVULSION [None]
  - IMPAIRED HEALING [None]
  - INJECTION SITE REACTION [None]
  - INJECTION SITE SCAR [None]
  - INJECTION SITE ULCER [None]
